FAERS Safety Report 6685204-X (Version None)
Quarter: 2010Q2

REPORT INFORMATION
  Report Type: 
  Country: None (occurrence: None)
  Receive Date: 20100416
  Receipt Date: 20100409
  Transmission Date: 20101027
  Serious: Yes (Hospitalization, Other)
  Sender: FDA-Public Use
  Company Number: JP-ELI_LILLY_AND_COMPANY-JP201002001312

PATIENT
  Sex: Male
  Weight: 89 kg

DRUGS (20)
  1. ALIMTA [Suspect]
     Indication: LUNG ADENOCARCINOMA RECURRENT
     Dosage: 500 MG/M2, EVERY 21 DAYS
     Route: 042
     Dates: start: 20091130, end: 20100127
  2. PANVITAN [Concomitant]
     Dosage: 1 G, DAILY (1/D)
     Route: 048
     Dates: start: 20091118
  3. VITAMIN B-12 [Concomitant]
     Dosage: 1 MG, UNK
     Route: 030
     Dates: start: 20091118, end: 20100113
  4. GLUCOBAY [Concomitant]
     Indication: DIABETES MELLITUS
     Dosage: 100 MG, 3/D
     Route: 048
  5. NELBIS [Concomitant]
     Indication: DIABETES MELLITUS
     Dosage: 250 MG, 3/D
     Route: 048
  6. WARFARIN POTASSIUM [Concomitant]
     Indication: ATRIAL FIBRILLATION
     Dosage: 3.5 MG, DAILY (1/D)
     Route: 048
  7. AMLODIPINE [Concomitant]
     Indication: HYPERTENSION
     Dosage: 5 MG, DAILY (1/D)
     Route: 048
  8. ARTIST [Concomitant]
     Indication: HYPERTENSION
     Dosage: 10 MG, DAILY (1/D)
     Route: 048
  9. LOXONIN [Concomitant]
     Indication: OSTEOARTHRITIS
     Dosage: 60 MG, 3/D
     Route: 048
  10. MUCOSTA [Concomitant]
     Indication: GASTRITIS PROPHYLAXIS
     Dosage: 100 MG, 2/D
     Route: 048
  11. NOVORAPID [Concomitant]
     Indication: DIABETES MELLITUS
     Dosage: 14 IU, EACH MORNING
     Route: 058
  12. NOVORAPID [Concomitant]
     Dosage: 20 IU, EACH EVENING
     Route: 058
  13. NOVORAPID [Concomitant]
     Dosage: 4 IU, DAILY (1/D)
     Route: 058
  14. FAMOTIDINE [Concomitant]
     Indication: GASTRITIS PROPHYLAXIS
     Dosage: 20 MG, DAILY (1/D)
     Route: 048
     Dates: end: 20100202
  15. PRIMPERAN /00041901/ [Concomitant]
     Indication: PROPHYLAXIS OF NAUSEA AND VOMITING
     Dosage: 10 MG, UNK
     Route: 042
     Dates: start: 20091130, end: 20100127
  16. DECADRON /NET/ [Concomitant]
     Indication: PROPHYLAXIS OF NAUSEA AND VOMITING
     Dosage: 2 MG, UNK
     Route: 042
     Dates: start: 20091130, end: 20100106
  17. DECADRON /NET/ [Concomitant]
     Dosage: 4 MG, UNK
     Route: 042
     Dates: start: 20100127, end: 20100127
  18. TAKEPRON [Concomitant]
     Indication: GASTRITIS PROPHYLAXIS
     Dosage: 15 MG, DAILY (1/D)
     Route: 048
     Dates: start: 20100203
  19. COTRIM [Concomitant]
     Indication: INFECTION PROPHYLAXIS
     Dosage: 1 D/F, UNK
     Route: 048
     Dates: start: 20100208
  20. NABOAL                             /00372302/ [Concomitant]
     Indication: OSTEOARTHRITIS
     Dosage: 37.5 MG, 2/D
     Route: 048

REACTIONS (7)
  - BLOOD GLUCOSE INCREASED [None]
  - DIARRHOEA [None]
  - HEPATIC FUNCTION ABNORMAL [None]
  - INTERSTITIAL LUNG DISEASE [None]
  - PLEURAL EFFUSION [None]
  - PYREXIA [None]
  - VOMITING [None]
